FAERS Safety Report 6318685-1 (Version None)
Quarter: 2009Q3

REPORT INFORMATION
  Report Type: 
  Country: None (occurrence: None)
  Receive Date: 20090819
  Receipt Date: 20090804
  Transmission Date: 20100115
  Serious: Yes (Death, Other)
  Sender: FDA-Public Use
  Company Number: 2009PV000060

PATIENT
  Age: 55 Year
  Sex: Male
  Weight: 80 kg

DRUGS (5)
  1. DEPOCYT [Suspect]
     Indication: METASTASES TO MENINGES
     Dosage: 50 MG, 1X, INTH
     Route: 037
     Dates: start: 20090703, end: 20090703
  2. VINCRISTINE [Suspect]
     Dosage: 2 MG; QD; IV
     Route: 042
     Dates: start: 20090702
  3. METHOTREXATE [Suspect]
     Dosage: 5500 MG, QD; IV
     Route: 042
     Dates: start: 20090702
  4. DOXORUBICIN HCL [Suspect]
     Dosage: 110 MG, QD; IV
     Route: 042
     Dates: start: 20090703
  5. CYCLOPHOSPHAMIDE [Suspect]
     Dosage: 460 MG, QD; IV
     Route: 042
     Dates: start: 20090703

REACTIONS (7)
  - APLASIA [None]
  - BACTERIAL SEPSIS [None]
  - BONE MARROW FAILURE [None]
  - ENTEROBACTER SEPSIS [None]
  - GENERAL PHYSICAL HEALTH DETERIORATION [None]
  - MENINGITIS [None]
  - SYSTEMIC INFLAMMATORY RESPONSE SYNDROME [None]
